FAERS Safety Report 23609064 (Version 1)
Quarter: 2024Q1

REPORT INFORMATION
  Report Type: Spontaneous
  Country: BR (occurrence: BR)
  Receive Date: 20240308
  Receipt Date: 20240308
  Transmission Date: 20240410
  Serious: Yes (Other)
  Sender: FDA-Public Use
  Company Number: BR-ORGANON-O2402BRA002016

PATIENT
  Age: 36 Year
  Sex: Female
  Weight: 98 kg

DRUGS (1)
  1. ETONOGESTREL [Suspect]
     Active Substance: ETONOGESTREL
     Indication: Contraception
     Dosage: 1 IMPLANT, (LEFT ARM)
     Route: 059
     Dates: start: 20230108, end: 20240217

REACTIONS (4)
  - Device expulsion [Recovered/Resolved]
  - Impaired healing [Recovered/Resolved]
  - Complication associated with device [Recovered/Resolved]
  - Implant site erythema [Recovering/Resolving]
